FAERS Safety Report 25105272 (Version 1)
Quarter: 2025Q1

REPORT INFORMATION
  Report Type: Report from Study
  Country: CN (occurrence: CN)
  Receive Date: 20250321
  Receipt Date: 20250321
  Transmission Date: 20250409
  Serious: Yes (Hospitalization, Other)
  Sender: ALEXION PHARMACEUTICALS
  Company Number: CN-ASTRAZENECA-202503GLO012205CN

PATIENT
  Age: 10 Year

DRUGS (12)
  1. SELUMETINIB [Suspect]
     Active Substance: SELUMETINIB
     Dosage: 30 MILLIGRAM, BID
     Route: 065
  2. SELUMETINIB [Suspect]
     Active Substance: SELUMETINIB
     Dosage: 20 MILLIGRAM, QD
     Route: 065
  3. SELUMETINIB [Suspect]
     Active Substance: SELUMETINIB
     Route: 065
  4. SELUMETINIB [Suspect]
     Active Substance: SELUMETINIB
     Dosage: 10 MG AND 20 MG, BID
     Route: 065
  5. SELUMETINIB [Suspect]
     Active Substance: SELUMETINIB
     Dosage: 10 MG AND 20 MG, BID
     Route: 065
  6. AMBROXOL HYDROCHLORIDE [Concomitant]
     Active Substance: AMBROXOL HYDROCHLORIDE
     Dosage: UNK, QD
  7. TACROLIMUS [Concomitant]
     Active Substance: TACROLIMUS
     Route: 065
  8. UREA [Concomitant]
     Active Substance: UREA
     Route: 065
  9. LIDOCAINE HYDROCHLORIDE [Concomitant]
     Active Substance: LIDOCAINE HYDROCHLORIDE
     Indication: Surgery
     Dosage: UNK, QD
     Route: 065
  10. Compound lactic acid [Concomitant]
     Route: 065
  11. CYSTEINE\GLYCINE\GLYCYRRHIZIN [Concomitant]
     Active Substance: CYSTEINE\GLYCINE\GLYCYRRHIZIN
     Indication: Prophylaxis
     Dosage: UNK, TID
     Route: 065
  12. VITAMIN B2 [Concomitant]
     Active Substance: RIBOFLAVIN
     Dosage: UNK, BID
     Route: 065

REACTIONS (1)
  - Anal abscess [Not Recovered/Not Resolved]
